FAERS Safety Report 7463609-7 (Version None)
Quarter: 2011Q1

REPORT INFORMATION
  Report Type: 
  Country: None (occurrence: None)
  Receive Date: 20110302
  Receipt Date: 20101209
  Transmission Date: 20110831
  Serious: Yes (Hospitalization)
  Sender: FDA-Public Use
  Company Number: 163-21880-10081592

PATIENT
  Age: 76 Year
  Sex: Female

DRUGS (9)
  1. REVLIMID [Suspect]
     Indication: MULTIPLE MYELOMA
     Dosage: 10 MG, DAILY X 21 DAYS, PO
     Route: 048
     Dates: start: 20100721
  2. IMIPRAMINE [Concomitant]
  3. REVLIMID [Suspect]
  4. COMBIVENT [Concomitant]
  5. REVLIMID [Suspect]
  6. FORADIL [Concomitant]
  7. FENTANYL [Concomitant]
  8. GABAPENTIN [Concomitant]
  9. LOVASTATIN [Concomitant]

REACTIONS (3)
  - RENAL FUNCTION TEST ABNORMAL [None]
  - ADVERSE EVENT [None]
  - CHRONIC OBSTRUCTIVE PULMONARY DISEASE [None]
